FAERS Safety Report 11823386 (Version 1)
Quarter: 2015Q4

REPORT INFORMATION
  Report Type: Spontaneous
  Country: US (occurrence: US)
  Receive Date: 20151210
  Receipt Date: 20151210
  Transmission Date: 20160305
  Serious: No
  Sender: FDA-Public Use
  Company Number: GXBR2015US002526

PATIENT
  Age: 37 Year
  Sex: Male
  Weight: 57.6 kg

DRUGS (4)
  1. SYNTHROID [Concomitant]
     Active Substance: LEVOTHYROXINE SODIUM
     Dosage: UNK DF, UNK
     Route: 048
     Dates: start: 20150101
  2. CLOMIPRAMINE [Suspect]
     Active Substance: CLOMIPRAMINE
     Indication: PRODUCT USED FOR UNKNOWN INDICATION
     Dosage: 80 MG, ONCE/SINGLE
     Route: 048
     Dates: start: 20151105, end: 20151105
  3. CLARITIN [Concomitant]
     Active Substance: LORATADINE
     Dosage: UNK DF, UNK
     Route: 065
     Dates: start: 20150101
  4. SINGULAIR [Concomitant]
     Active Substance: MONTELUKAST SODIUM
     Dosage: UNK DF, UNK
     Route: 065
     Dates: start: 20150101

REACTIONS (5)
  - Dry mouth [Recovered/Resolved]
  - Accidental exposure to product [Recovered/Resolved]
  - Joint stiffness [Recovered/Resolved]
  - Dry throat [Recovered/Resolved]
  - Fatigue [Recovered/Resolved]

NARRATIVE: CASE EVENT DATE: 20151105
